FAERS Safety Report 21014777 (Version 1)
Quarter: 2022Q2

REPORT INFORMATION
  Report Type: Report from Study
  Country: FR (occurrence: FR)
  Receive Date: 20220628
  Receipt Date: 20220628
  Transmission Date: 20220720
  Serious: Yes (Other)
  Sender: FDA-Public Use
  Company Number: FR-AMGEN-FRACT2022107925

PATIENT
  Age: 62 Year
  Sex: Male

DRUGS (4)
  1. CARFILZOMIB [Suspect]
     Active Substance: CARFILZOMIB
     Indication: Plasma cell myeloma
     Dosage: 112 MILLIGRAM, PER CHEMO REGIM
     Route: 042
     Dates: start: 20201125
  2. ISATUXIMAB [Suspect]
     Active Substance: ISATUXIMAB
     Indication: Plasma cell myeloma
     Dosage: 820 MILLIGRAM, PER CHEMO REGIM
     Route: 042
     Dates: start: 20201125
  3. POMALIDOMIDE [Suspect]
     Active Substance: POMALIDOMIDE
     Indication: Plasma cell myeloma
     Dosage: 4 MILLIGRAM, PER CHEMO REGIM
     Route: 048
     Dates: start: 20201125
  4. DEXAMETHASONE [Concomitant]
     Active Substance: DEXAMETHASONE
     Indication: Plasma cell myeloma
     Dosage: 40 MILLIGRAM
     Route: 065
     Dates: start: 20201125

REACTIONS (1)
  - Porocarcinoma [Unknown]

NARRATIVE: CASE EVENT DATE: 20220301
